FAERS Safety Report 14436334 (Version 1)
Quarter: 2018Q1

REPORT INFORMATION
  Report Type: Spontaneous
  Country: US (occurrence: US)
  Receive Date: 20180125
  Receipt Date: 20180125
  Transmission Date: 20180509
  Serious: No
  Sender: FDA-Public Use
  Company Number: US-UNITED THERAPEUTICS-UNT-2017-009458

PATIENT
  Sex: Female

DRUGS (2)
  1. TYVASO [Suspect]
     Active Substance: TREPROSTINIL
     Indication: PULMONARY ARTERIAL HYPERTENSION
     Dosage: 18 ?G, QID
     Dates: start: 20170621
  2. TYVASO [Suspect]
     Active Substance: TREPROSTINIL
     Dosage: 54 ?G, QID
     Dates: start: 20170620

REACTIONS (6)
  - Balance disorder [Unknown]
  - Pain in jaw [Unknown]
  - Asthenia [Unknown]
  - Dizziness [Unknown]
  - Fatigue [Unknown]
  - Hypotension [Unknown]

NARRATIVE: CASE EVENT DATE: 2017
